FAERS Safety Report 24074641 (Version 1)
Quarter: 2024Q3

REPORT INFORMATION
  Report Type: Spontaneous
  Country: IT (occurrence: IT)
  Receive Date: 20240710
  Receipt Date: 20240710
  Transmission Date: 20241017
  Serious: Yes (Other)
  Sender: AMGEN
  Company Number: IT-AMGEN-ITASP2024133211

PATIENT

DRUGS (4)
  1. PROLIA [Suspect]
     Active Substance: DENOSUMAB
     Indication: Granulomatosis with polyangiitis
     Dosage: UNK
     Route: 065
  2. PROLIA [Suspect]
     Active Substance: DENOSUMAB
     Indication: Microscopic polyangiitis
  3. AVACOPAN [Suspect]
     Active Substance: AVACOPAN
     Indication: Granulomatosis with polyangiitis
     Route: 065
  4. AVACOPAN [Suspect]
     Active Substance: AVACOPAN
     Indication: Microscopic polyangiitis

REACTIONS (9)
  - Lower urinary tract symptoms [Unknown]
  - JC polyomavirus test positive [Unknown]
  - Granulomatosis with polyangiitis [Unknown]
  - Mononeuropathy multiplex [Unknown]
  - Labelled drug-drug interaction issue [Unknown]
  - Interferon gamma release assay positive [Unknown]
  - Microscopic polyangiitis [Unknown]
  - Product temperature excursion issue [Unknown]
  - Off label use [Unknown]
